FAERS Safety Report 13700131 (Version 3)
Quarter: 2018Q1

REPORT INFORMATION
  Report Type: Report from Study
  Country: None (occurrence: US)
  Receive Date: 20170629
  Receipt Date: 20180108
  Transmission Date: 20180508
  Serious: Yes (Other)
  Sender: FDA-Public Use
  Company Number: US-ABBVIE-17K-163-2021674-00

PATIENT
  Age: 54 Year
  Sex: Female
  Weight: 86.71 kg

DRUGS (2)
  1. HUMIRA [Suspect]
     Active Substance: ADALIMUMAB
     Indication: UVEITIS
     Route: 058
     Dates: start: 201706
  2. HUMIRA [Suspect]
     Active Substance: ADALIMUMAB
     Indication: UVEITIC GLAUCOMA

REACTIONS (6)
  - Uveitis [Unknown]
  - Eye oedema [Recovering/Resolving]
  - Visual impairment [Not Recovered/Not Resolved]
  - Lacrimation increased [Unknown]
  - Eye pain [Not Recovered/Not Resolved]
  - Eye pruritus [Unknown]

NARRATIVE: CASE EVENT DATE: 2017
